FAERS Safety Report 7183375-2 (Version None)
Quarter: 2010Q4

REPORT INFORMATION
  Report Type: 
  Country: None (occurrence: None)
  Receive Date: 20101222
  Receipt Date: 20101215
  Transmission Date: 20110411
  Serious: Yes (Death, Hospitalization, Disabling)
  Sender: FDA-Public Use
  Company Number: FR-ABBOTT-06P-056-0324754-00

PATIENT
  Sex: Male

DRUGS (11)
  1. HUMIRA [Suspect]
     Indication: RHEUMATOID ARTHRITIS
     Route: 058
     Dates: start: 20040426, end: 20060205
  2. COMMERCIAL HUMIRA [Concomitant]
     Indication: RHEUMATOID ARTHRITIS
     Route: 058
     Dates: start: 20030929
  3. BISOPROLOL FUMARATE [Concomitant]
     Indication: HYPERTENSION
     Dates: start: 19950101
  4. TRIATEC [Concomitant]
     Indication: HYPERTENSION
     Dates: start: 20050915
  5. LASIX [Concomitant]
     Indication: HYPERTENSION
     Dates: start: 20050915
  6. ZYLORIC [Concomitant]
     Indication: HYPERURICAEMIA
     Dates: start: 19950101
  7. ADANCOR [Concomitant]
     Indication: CORONARY ARTERY DISEASE
  8. CORTANCYL [Concomitant]
     Indication: RHEUMATOID ARTHRITIS
     Dates: start: 20041001
  9. LAMALINE [Concomitant]
     Indication: RHEUMATOID ARTHRITIS
     Dates: start: 20030408
  10. SEROPRAM [Concomitant]
     Indication: ANXIETY
  11. METOCALCIUM [Concomitant]
     Indication: OSTEOPOROSIS PROPHYLAXIS

REACTIONS (1)
  - PLEURAL EFFUSION [None]
